FAERS Safety Report 6020503-6 (Version None)
Quarter: 2008Q4

REPORT INFORMATION
  Report Type: 
  Country: None (occurrence: None)
  Receive Date: 20081226
  Receipt Date: 20081218
  Transmission Date: 20090506
  Serious: Yes (Hospitalization)
  Sender: FDA-Public Use
  Company Number: DE-ABBOTT-08P-062-0489938-00

PATIENT
  Sex: Female
  Weight: 75 kg

DRUGS (10)
  1. HUMIRA [Suspect]
     Indication: RHEUMATOID ARTHRITIS
     Route: 058
     Dates: start: 20060101, end: 20080701
  2. IODIDE [Concomitant]
     Indication: DRUG USE FOR UNKNOWN INDICATION
     Dosage: 1-0-0
  3. TILIDINE [Concomitant]
     Indication: DRUG USE FOR UNKNOWN INDICATION
     Dosage: 3 IN 1 DAY, 1-1-0-1
     Route: 048
  4. PANTOZOLE [Concomitant]
     Indication: DRUG USE FOR UNKNOWN INDICATION
     Dosage: 1-0-0
  5. METHOTREXATE [Concomitant]
     Indication: DRUG USE FOR UNKNOWN INDICATION
  6. FOLIC ACID [Concomitant]
     Indication: DRUG USE FOR UNKNOWN INDICATION
     Dosage: 6 IN 1 WEEKS, 1-0-0
     Route: 048
  7. METOCLOPRAMIDE [Concomitant]
     Indication: DRUG USE FOR UNKNOWN INDICATION
     Dosage: 1 IN 1 DAYS, 1-0-0
     Route: 048
  8. MELOXICAM [Concomitant]
     Indication: DRUG USE FOR UNKNOWN INDICATION
     Dosage: 1 IN 1 DAYS, 1-0-0
     Route: 048
  9. DETROSITOL [Concomitant]
     Indication: DRUG USE FOR UNKNOWN INDICATION
     Dosage: 1 IN 1 DAYS, 1-0-0
  10. ENOXAPARIN SODIUM [Concomitant]
     Indication: DRUG USE FOR UNKNOWN INDICATION
     Dosage: 0.4, 1 IN 1 DAYS, 1-0-0
     Route: 058

REACTIONS (3)
  - FOOT DEFORMITY [None]
  - HAND DEFORMITY [None]
  - POST PROCEDURAL HAEMORRHAGE [None]
